FAERS Safety Report 25555431 (Version 1)
Quarter: 2025Q3

REPORT INFORMATION
  Report Type: Spontaneous
  Country: US (occurrence: US)
  Receive Date: 20250715
  Receipt Date: 20250715
  Transmission Date: 20251021
  Serious: No
  Sender: NOVO NORDISK
  Company Number: US-NOVOPROD-1242413

PATIENT
  Sex: Male

DRUGS (2)
  1. OZEMPIC [Suspect]
     Active Substance: SEMAGLUTIDE
     Indication: Type 2 diabetes mellitus
     Route: 058
     Dates: start: 20240415
  2. NOVOLOG [Concomitant]
     Active Substance: INSULIN ASPART
     Indication: Product used for unknown indication
     Dosage: 20 IU, QD
     Route: 058

REACTIONS (4)
  - Decreased appetite [Unknown]
  - Decreased appetite [Unknown]
  - Product label confusion [Unknown]
  - Extra dose administered [Not Recovered/Not Resolved]

NARRATIVE: CASE EVENT DATE: 20240401
